FAERS Safety Report 23052746 (Version 1)
Quarter: 2023Q4

REPORT INFORMATION
  Report Type: Spontaneous
  Country: US (occurrence: US)
  Receive Date: 20231011
  Receipt Date: 20231011
  Transmission Date: 20240110
  Serious: No
  Sender: FDA-Public Use
  Company Number: US-BoehringerIngelheim-2023-BI-266000

PATIENT
  Age: 75 Year
  Sex: Female

DRUGS (1)
  1. JARDIANCE [Suspect]
     Active Substance: EMPAGLIFLOZIN
     Indication: Product used for unknown indication
     Route: 048
     Dates: start: 2023

REACTIONS (2)
  - Kidney infection [Recovered/Resolved]
  - Kidney infection [Recovering/Resolving]

NARRATIVE: CASE EVENT DATE: 20230501
